FAERS Safety Report 25042639 (Version 1)
Quarter: 2025Q1

REPORT INFORMATION
  Report Type: Spontaneous
  Country: ES (occurrence: ES)
  Receive Date: 20250305
  Receipt Date: 20250305
  Transmission Date: 20250409
  Serious: Yes (Life-Threatening, Hospitalization)
  Sender: RADIUS PHARM
  Company Number: ES-RADIUS HEALTH INC.-2025ES001780

PATIENT
  Age: 79 Year

DRUGS (1)
  1. ABALOPARATIDE [Suspect]
     Active Substance: ABALOPARATIDE
     Indication: Osteoporosis
     Dates: start: 20250130

REACTIONS (1)
  - Cerebrovascular accident [Unknown]

NARRATIVE: CASE EVENT DATE: 20250201
